FAERS Safety Report 7429767-5 (Version None)
Quarter: 2011Q2

REPORT INFORMATION
  Report Type: 
  Country: None (occurrence: None)
  Receive Date: 20110421
  Receipt Date: 20110419
  Transmission Date: 20111010
  Serious: Yes (Other)
  Sender: FDA-Public Use
  Company Number: PHHO2011SE06926

PATIENT
  Sex: Male
  Weight: 92 kg

DRUGS (6)
  1. CELLCEPT [Suspect]
     Dosage: UNK
     Route: 048
     Dates: start: 20110418
  2. PREDNISOLONE [Concomitant]
     Indication: HEART TRANSPLANT
  3. CERTICAN [Suspect]
     Indication: HEART TRANSPLANT
     Dosage: 0.75 MG, BID
     Route: 048
     Dates: start: 20110318
  4. CELLCEPT [Suspect]
     Indication: HEART TRANSPLANT
     Dosage: 1.5 G, BID
     Route: 048
     Dates: start: 20110318, end: 20110417
  5. CYCLOSPORINE [Suspect]
     Dosage: 100 MG, BID
     Route: 048
     Dates: start: 20110318, end: 20110417
  6. CYCLOSPORINE [Suspect]
     Indication: HEART TRANSPLANT
     Dosage: UNK
     Route: 048
     Dates: start: 20110418

REACTIONS (1)
  - PERICARDIAL EFFUSION [None]
